FAERS Safety Report 5070965-6 (Version None)
Quarter: 2006Q3

REPORT INFORMATION
  Report Type: 
  Country: None (occurrence: None)
  Receive Date: 20060803
  Receipt Date: 20060803
  Transmission Date: 20061208
  Serious: Yes (Other)
  Sender: FDA-Public Use
  Company Number: None

PATIENT
  Age: 69 Year
  Sex: Female

DRUGS (8)
  1. POLYETHYLENE GLYCOL 3350 POWDER FOR SOLUTION [Suspect]
     Indication: CONSTIPATION
     Dosage: MIX AND DRINK 17GM (1 CAPFUL) IN 8OZ OF WATER DAILY
  2. ACTIVELLA [Concomitant]
  3. HYDROCODONE BIT/APAP [Concomitant]
  4. EFFEXOR XR [Concomitant]
  5. HYDROXYCHLOROQUINE SULFATE [Concomitant]
  6. LORAZEPAM [Concomitant]
  7. BELLAMINE-S [Concomitant]
  8. LEVOXYL [Concomitant]

REACTIONS (2)
  - CONSTIPATION [None]
  - PHARMACEUTICAL PRODUCT COMPLAINT [None]
